FAERS Safety Report 13020283 (Version 1)
Quarter: 2016Q4

REPORT INFORMATION
  Report Type: Spontaneous
  Country: DE (occurrence: DE)
  Receive Date: 20161212
  Receipt Date: 20161212
  Transmission Date: 20170207
  Serious: Yes (Other)
  Sender: FDA-Public Use
  Company Number: DE-TEVA-716585GER

PATIENT
  Age: 35 Year
  Sex: Female
  Weight: 63 kg

DRUGS (2)
  1. FOLSAEURE [Concomitant]
     Active Substance: FOLIC ACID
     Indication: PROPHYLAXIS OF NEURAL TUBE DEFECT
     Route: 048
     Dates: start: 20150723, end: 20160426
  2. QUETIAPIN [Suspect]
     Active Substance: QUETIAPINE
     Indication: PSYCHOTIC DISORDER
     Dosage: 900 MILLIGRAM DAILY;
     Route: 048
     Dates: start: 20150723, end: 20160426

REACTIONS (1)
  - Gestational diabetes [Recovered/Resolved]
